FAERS Safety Report 15250109 (Version 2)
Quarter: 2018Q3

REPORT INFORMATION
  Report Type: Report from Study
  Country: BR (occurrence: BR)
  Receive Date: 20180807
  Receipt Date: 20180828
  Transmission Date: 20181010
  Serious: Yes (Other)
  Sender: FDA-Public Use
  Company Number: BR-JNJFOC-20180605091

PATIENT
  Age: 41 Year
  Sex: Female
  Weight: 71 kg

DRUGS (1)
  1. SIMPONI [Suspect]
     Active Substance: GOLIMUMAB
     Indication: RHEUMATOID ARTHRITIS
     Route: 058
     Dates: start: 20130418, end: 20180505

REACTIONS (3)
  - Hysterectomy [Unknown]
  - Influenza [Recovering/Resolving]
  - Acute sinusitis [Recovering/Resolving]

NARRATIVE: CASE EVENT DATE: 201804
